FAERS Safety Report 14892455 (Version 3)
Quarter: 2018Q2

REPORT INFORMATION
  Report Type: Spontaneous
  Country: BR (occurrence: BR)
  Receive Date: 20180514
  Receipt Date: 20180608
  Transmission Date: 20180711
  Serious: Yes (Hospitalization)
  Sender: FDA-Public Use
  Company Number: BR-B.I. PHARMACEUTICALS,INC./RIDGEFIELD-2018-BI-025719

PATIENT
  Age: 89 Year
  Sex: Female
  Weight: 56 kg

DRUGS (8)
  1. FUROSEMIDA [Concomitant]
     Active Substance: FUROSEMIDE
     Indication: DIURETIC THERAPY
     Dosage: DOSE- NOT REPORTED
     Route: 048
     Dates: start: 201708
  2. VITAMIN B [Concomitant]
     Active Substance: VITAMIN B
     Indication: PAIN IN EXTREMITY
     Route: 048
     Dates: start: 20180316
  3. OMEPRAZOL [Concomitant]
     Active Substance: OMEPRAZOLE
     Indication: GASTRITIS
  4. ATENSINA [Suspect]
     Active Substance: CLONIDINE
     Indication: HYPERTENSION
     Route: 048
     Dates: start: 201709, end: 201804
  5. OMEPRAZOL [Concomitant]
     Active Substance: OMEPRAZOLE
     Indication: GASTROOESOPHAGEAL REFLUX DISEASE
  6. OMEPRAZOL [Concomitant]
     Active Substance: OMEPRAZOLE
     Indication: HIATUS HERNIA
  7. HIDRALAZINA [Concomitant]
     Indication: HYPERTENSION
     Route: 048
     Dates: start: 201708
  8. OMEPRAZOL [Concomitant]
     Active Substance: OMEPRAZOLE
     Indication: DIVERTICULITIS
     Route: 048
     Dates: start: 201708

REACTIONS (7)
  - Micturition disorder [Recovered/Resolved]
  - Blood pressure abnormal [Recovered/Resolved]
  - Peripheral swelling [Recovered/Resolved]
  - Joint swelling [Recovered/Resolved]
  - Swelling face [Recovered/Resolved]
  - Eye swelling [Recovered/Resolved]
  - Hypertension [Recovered/Resolved]

NARRATIVE: CASE EVENT DATE: 201801
